FAERS Safety Report 7061099-X (Version None)
Quarter: 2010Q4

REPORT INFORMATION
  Report Type: 
  Country: None (occurrence: None)
  Receive Date: 20101026
  Receipt Date: 20101013
  Transmission Date: 20110411
  Serious: Yes (Other)
  Sender: FDA-Public Use
  Company Number: NG-PFIZER INC-2010119703

PATIENT
  Age: 30 Year
  Sex: Male

DRUGS (2)
  1. SERTRALINE HYDROCHLORIDE [Suspect]
     Indication: SCHIZOPHRENIA
     Dosage: 50 MG/DAY
  2. RISPERIDONE [Interacting]
     Indication: SCHIZOPHRENIA
     Dosage: 4 MG/DAY

REACTIONS (2)
  - DRUG INTERACTION [None]
  - PRIAPISM [None]
